FAERS Safety Report 4339348-8 (Version None)
Quarter: 2004Q2

REPORT INFORMATION
  Report Type: 
  Country: None (occurrence: None)
  Receive Date: 20040414
  Receipt Date: 20040414
  Transmission Date: 20050107
  Serious: Yes (Disabling)
  Sender: FDA-Public Use
  Company Number: None

PATIENT
  Age: 7 Year
  Sex: Female
  Weight: 60 kg

DRUGS (8)
  1. ADVAIR DISKUS 100/50 [Suspect]
     Indication: ASTHMA
     Dosage: 1 PUFF INHALER ORAL
     Route: 048
     Dates: start: 20020810, end: 20030301
  2. ADVAIR DISKUS 100/50 [Suspect]
     Indication: CYSTIC FIBROSIS
     Dosage: 1 PUFF INHALER ORAL
     Route: 048
     Dates: start: 20020810, end: 20030301
  3. ALBUTEROL [Concomitant]
  4. INTAL [Concomitant]
  5. MUCOMYST [Concomitant]
  6. ZYRTEC [Concomitant]
  7. BACTRIM [Concomitant]
  8. FLONASE [Concomitant]

REACTIONS (8)
  - ACTIVITIES OF DAILY LIVING IMPAIRED [None]
  - CRYING [None]
  - EMOTIONAL DISORDER [None]
  - GROWTH RETARDATION [None]
  - MUSCULAR WEAKNESS [None]
  - NERVOUS SYSTEM DISORDER [None]
  - TREMOR [None]
  - WEIGHT DECREASED [None]
